FAERS Safety Report 6288825-1 (Version None)
Quarter: 2009Q3

REPORT INFORMATION
  Report Type: 
  Country: None (occurrence: None)
  Receive Date: 20090727
  Receipt Date: 20090716
  Transmission Date: 20100115
  Serious: Yes (Hospitalization)
  Sender: FDA-Public Use
  Company Number: WAES 0907USA02919

PATIENT
  Age: 76 Year
  Sex: Female

DRUGS (11)
  1. ZETIA [Suspect]
     Indication: HYPERCHOLESTEROLAEMIA
     Dosage: 10 MG/DAILY PO, 5 MG/DAILY PO
     Route: 048
     Dates: start: 20080918, end: 20081210
  2. ZETIA [Suspect]
     Indication: HYPERCHOLESTEROLAEMIA
     Dosage: 10 MG/DAILY PO, 5 MG/DAILY PO
     Route: 048
     Dates: start: 20081211, end: 20090111
  3. AMLODIPINE BESYLATE [Concomitant]
  4. BENFOTIAMINE (+) CYANOCOBALAMIN (+) PYRI [Concomitant]
  5. CELIPROLOL HCL [Concomitant]
  6. CHOLECALCIFEROL (+) VITAMIN A [Concomitant]
  7. ETIZOLAM [Concomitant]
  8. IFENPRODIL TARTRATE [Concomitant]
  9. OLMESARTAN MEDOXOMIL [Concomitant]
  10. PRAVASTATIN SODIUM [Concomitant]
  11. TEPRENONE [Concomitant]

REACTIONS (1)
  - CEREBRAL INFARCTION [None]
